FAERS Safety Report 8232429-8 (Version None)
Quarter: 2012Q1

REPORT INFORMATION
  Report Type: 
  Country: None (occurrence: None)
  Receive Date: 20120323
  Receipt Date: 20120316
  Transmission Date: 20120608
  Serious: Yes (Hospitalization, Other)
  Sender: FDA-Public Use
  Company Number: US-TEVA-328595USA

PATIENT
  Sex: Male

DRUGS (3)
  1. VALPROATE SODIUM [Concomitant]
     Indication: MOOD ALTERED
     Dosage: 1000 MILLIGRAM;
  2. CLONAZEPAM [Concomitant]
     Indication: SCHIZOAFFECTIVE DISORDER
     Dosage: 1 MILLIGRAM;
  3. CLOZAPINE [Suspect]
     Indication: SCHIZOAFFECTIVE DISORDER
     Dosage: 100 MG IN AM, 300 MG AT NIGHT

REACTIONS (3)
  - INFLUENZA [None]
  - NON-HODGKIN'S LYMPHOMA [None]
  - PNEUMONIA [None]
